FAERS Safety Report 9184504 (Version 2)
Quarter: 2013Q1

REPORT INFORMATION
  Report Type: Spontaneous
  Country: NZ (occurrence: NZ)
  Receive Date: 20130322
  Receipt Date: 20130326
  Transmission Date: 20140127
  Serious: Yes (Other)
  Sender: FDA-Public Use
  Company Number: PHHY2013NZ026603

PATIENT
  Age: 71 Year
  Sex: Female

DRUGS (3)
  1. METOPROLOL [Suspect]
     Route: 048
  2. ACICLOVIR [Concomitant]
     Route: 048
  3. LEVOTHYROXINE [Concomitant]
     Route: 048

REACTIONS (3)
  - Chest pain [Unknown]
  - Palpitations [Unknown]
  - Therapeutic response decreased [Unknown]
